FAERS Safety Report 14542626 (Version 2)
Quarter: 2018Q1

REPORT INFORMATION
  Report Type: Report from Study
  Country: US (occurrence: US)
  Receive Date: 20180216
  Receipt Date: 20180308
  Transmission Date: 20180509
  Serious: Yes (Hospitalization, Other)
  Sender: FDA-Public Use
  Company Number: PHHO2018US002313

PATIENT
  Age: 33 Year
  Sex: Male
  Weight: 81.2 kg

DRUGS (13)
  1. CIPRO [Concomitant]
     Active Substance: CIPROFLOXACIN HYDROCHLORIDE
     Indication: CONDITION AGGRAVATED
  2. BACTRIM DS [Concomitant]
     Active Substance: SULFAMETHOXAZOLE\TRIMETHOPRIM
     Indication: CYSTIC FIBROSIS
     Dosage: 2 DF, BID
     Route: 048
     Dates: start: 20170912, end: 20170926
  3. BACTRIM DS [Concomitant]
     Active Substance: SULFAMETHOXAZOLE\TRIMETHOPRIM
     Indication: CONDITION AGGRAVATED
  4. TOBI PODHALER [Suspect]
     Active Substance: TOBRAMYCIN
     Indication: PSEUDOMONAS INFECTION
  5. CREON [Concomitant]
     Active Substance: PANCRELIPASE AMYLASE\PANCRELIPASE LIPASE\PANCRELIPASE PROTEASE
     Indication: PANCREATIC FAILURE
     Dosage: 4 DF, PRN
     Route: 048
     Dates: start: 20160325
  6. ZITHROMAX [Concomitant]
     Active Substance: AZITHROMYCIN DIHYDRATE
     Indication: CYSTIC FIBROSIS
     Dosage: 500 MG, UNK
     Route: 065
     Dates: start: 20170406
  7. ORKAMBI [Concomitant]
     Active Substance: IVACAFTOR\LUMACAFTOR
     Indication: CYSTIC FIBROSIS
     Dosage: 2 DF, BID
     Route: 048
     Dates: start: 20161017
  8. SODIUM CHLORIDE. [Concomitant]
     Active Substance: SODIUM CHLORIDE
     Indication: CYSTIC FIBROSIS
     Dosage: 4 ML, BID
     Route: 055
     Dates: start: 20110314
  9. AZITHROMYCIN ANHYDROUS. [Concomitant]
     Active Substance: AZITHROMYCIN ANHYDROUS
     Indication: INFLAMMATION
     Dosage: 500 MG, UNK
     Route: 048
     Dates: start: 20110310
  10. JANUVIA [Concomitant]
     Active Substance: SITAGLIPTIN PHOSPHATE
     Indication: CYSTIC FIBROSIS RELATED DIABETES
     Dosage: 100 MG, QD
     Route: 048
     Dates: start: 20171025
  11. TOBI PODHALER [Suspect]
     Active Substance: TOBRAMYCIN
     Indication: CYSTIC FIBROSIS
     Dosage: 112 MG, QID
     Route: 055
     Dates: start: 20130717, end: 20171211
  12. CIPRO [Concomitant]
     Active Substance: CIPROFLOXACIN HYDROCHLORIDE
     Indication: CYSTIC FIBROSIS
     Dosage: 500 MG, BID
     Route: 048
     Dates: start: 20170912, end: 20170929
  13. PULMOZYME [Concomitant]
     Active Substance: DORNASE ALFA
     Indication: CYSTIC FIBROSIS
     Dosage: 2.5 MG, BID
     Route: 055
     Dates: start: 2011

REACTIONS (11)
  - Pulmonary function test decreased [Unknown]
  - Staphylococcal infection [Unknown]
  - Dyspnoea [Unknown]
  - Rhinorrhoea [Unknown]
  - Sputum discoloured [Unknown]
  - Decreased appetite [Unknown]
  - Chest pain [Unknown]
  - Cystic fibrosis [Recovered/Resolved]
  - Pyrexia [Unknown]
  - Condition aggravated [Recovered/Resolved]
  - Malaise [Unknown]

NARRATIVE: CASE EVENT DATE: 20171025
